FAERS Safety Report 13662120 (Version 3)
Quarter: 2017Q3

REPORT INFORMATION
  Report Type: Spontaneous
  Country: JP (occurrence: JP)
  Receive Date: 20170616
  Receipt Date: 20170721
  Transmission Date: 20171127
  Serious: Yes (Hospitalization)
  Sender: FDA-Public Use
  Company Number: JP-IMPAX LABORATORIES, INC-2017-IPXL-01764

PATIENT
  Age: 1 Month
  Sex: Male

DRUGS (5)
  1. LANDIOLOL [Suspect]
     Active Substance: LANDIOLOL
     Indication: JUNCTIONAL ECTOPIC TACHYCARDIA
  2. PROPRANOLOL HYDROCHLORIDE IR [Suspect]
     Active Substance: PROPRANOLOL HYDROCHLORIDE
     Indication: SUPRAVENTRICULAR TACHYCARDIA
     Dosage: UNK
     Route: 048
  3. PROPRANOLOL HYDROCHLORIDE IR [Suspect]
     Active Substance: PROPRANOLOL HYDROCHLORIDE
     Indication: JUNCTIONAL ECTOPIC TACHYCARDIA
  4. LANDIOLOL [Suspect]
     Active Substance: LANDIOLOL
     Indication: PRODUCT USE ISSUE
  5. LANDIOLOL [Suspect]
     Active Substance: LANDIOLOL
     Indication: SUPRAVENTRICULAR TACHYCARDIA
     Dosage: 5 ?G/KG/MIN CONTINUOUS INFUSION, UNK
     Route: 065

REACTIONS (3)
  - Supraventricular tachycardia [Recovered/Resolved]
  - Drug administered to patient of inappropriate age [Unknown]
  - Product use issue [Unknown]
